FAERS Safety Report 10775720 (Version 1)
Quarter: 2015Q1

REPORT INFORMATION
  Report Type: Spontaneous
  Country: US (occurrence: None)
  Receive Date: 20150206
  Receipt Date: 20150206
  Transmission Date: 20150721
  Serious: No
  Sender: FDA-Public Use
  Company Number: None

PATIENT
  Age: 43 Year
  Sex: Female
  Weight: 118.39 kg

DRUGS (1)
  1. BELVIQ [Suspect]
     Active Substance: LORCASERIN HYDROCHLORIDE
     Indication: WEIGHT CONTROL
     Dosage: 1 PILL TWICE DAILY TAKEN BY MOUH
     Route: 048
     Dates: start: 20150131, end: 20150205

REACTIONS (4)
  - Flushing [None]
  - Back pain [None]
  - Headache [None]
  - Flank pain [None]

NARRATIVE: CASE EVENT DATE: 20150205
